FAERS Safety Report 4313232-8 (Version None)
Quarter: 2004Q1

REPORT INFORMATION
  Report Type: 
  Country: None (occurrence: None)
  Receive Date: 20040305
  Receipt Date: 20040216
  Transmission Date: 20041129
  Serious: Yes (Other)
  Sender: FDA-Public Use
  Company Number: A-CH2004-05154

PATIENT
  Age: 75 Year
  Sex: Male
  Weight: 65 kg

DRUGS (6)
  1. TRACLEER [Suspect]
     Indication: PULMONARY HYPERTENSION
     Dosage: 62.5 MG, BID, ORAL
     Route: 048
     Dates: start: 20040115, end: 20040213
  2. MEDROL [Concomitant]
  3. BUMETANIDE [Concomitant]
  4. ALDACTONE [Concomitant]
  5. MIXTARD (INSULIN INJECTION, ISOPHANE, INSULIN) [Concomitant]
  6. ACTRAPID HUMAN (INSULIN HUMAN) [Concomitant]

REACTIONS (3)
  - DYSPNOEA EXACERBATED [None]
  - ERYTHEMA [None]
  - PRURITUS [None]
